FAERS Safety Report 4373039-2 (Version None)
Quarter: 2004Q2

REPORT INFORMATION
  Report Type: 
  Country: None (occurrence: None)
  Receive Date: 20040603
  Receipt Date: 20040517
  Transmission Date: 20050107
  Serious: Yes (Other)
  Sender: FDA-Public Use
  Company Number: USA040568027

PATIENT
  Sex: Female

DRUGS (1)
  1. ZYPREXA [Suspect]
     Indication: PSYCHOTIC DISORDER

REACTIONS (9)
  - ADRENAL DISORDER [None]
  - DRUG INEFFECTIVE [None]
  - HYPOXIA [None]
  - OXYGEN SATURATION DECREASED [None]
  - PNEUMONIA [None]
  - RED BLOOD CELL SEDIMENTATION RATE INCREASED [None]
  - RENAL DISORDER [None]
  - SEPSIS [None]
  - VITAMIN B12 INCREASED [None]
